FAERS Safety Report 19247565 (Version 2)
Quarter: 2023Q2

REPORT INFORMATION
  Report Type: Spontaneous
  Country: US (occurrence: US)
  Receive Date: 20210512
  Receipt Date: 20230529
  Transmission Date: 20230721
  Serious: No
  Sender: FDA-Public Use
  Company Number: US-UCBSA-2020022418

PATIENT
  Sex: Male

DRUGS (8)
  1. CIMZIA [Suspect]
     Active Substance: CERTOLIZUMAB PEGOL
     Indication: Psoriatic arthropathy
     Dosage: 400 MILLIGRAM, EV 4 WEEKS
     Route: 058
     Dates: start: 20191001
  2. CIMZIA [Suspect]
     Active Substance: CERTOLIZUMAB PEGOL
     Indication: Hidradenitis
  3. ZINC [Concomitant]
     Active Substance: ZINC
     Dosage: 66 MILLIGRAM
  4. ALEVE [Concomitant]
     Active Substance: NAPROXEN SODIUM
     Dosage: 220 MILLIGRAM
  5. VITAMIN B COMPLEX [Concomitant]
     Active Substance: CYANOCOBALAMIN\DEXPANTHENOL\NIACINAMIDE\PYRIDOXINE HYDROCHLORIDE\RIBOFLAVIN 5^-PHOSPHATE SODIUM\THIA
     Dosage: 0.4 MILLIGRAM
  6. VITAMIN D NOS [Concomitant]
     Active Substance: VITAMIN D NOS
     Dosage: 10 MICROGRAM
  7. FIBER LAX [Concomitant]
     Active Substance: CALCIUM POLYCARBOPHIL
     Dosage: 625 MILLIGRAM
  8. FISH OIL [Concomitant]
     Active Substance: FISH OIL

REACTIONS (2)
  - Rash vesicular [Recovering/Resolving]
  - Off label use [Unknown]
